FAERS Safety Report 21868168 (Version 5)
Quarter: 2023Q4

REPORT INFORMATION
  Report Type: Spontaneous
  Country: JP (occurrence: JP)
  Receive Date: 20230116
  Receipt Date: 20231116
  Transmission Date: 20240109
  Serious: Yes (Hospitalization, Disabling, Other)
  Sender: FDA-Public Use
  Company Number: JP-ABBVIE-4232852

PATIENT
  Age: 75 Year
  Sex: Male
  Weight: 57 kg

DRUGS (12)
  1. SKYRIZI [Suspect]
     Active Substance: RISANKIZUMAB-RZAA
     Indication: Pustular psoriasis
     Dosage: LAST ADMINISTRATION DATE 2022
     Route: 058
     Dates: start: 20221207
  2. SKYRIZI [Suspect]
     Active Substance: RISANKIZUMAB-RZAA
     Route: 058
     Dates: start: 20211013
  3. SKYRIZI [Suspect]
     Active Substance: RISANKIZUMAB-RZAA
     Dosage: LAST ADMINISTRATION DATE 2022
     Route: 058
     Dates: start: 20220914
  4. SKYRIZI [Suspect]
     Active Substance: RISANKIZUMAB-RZAA
     Route: 058
     Dates: start: 20230301
  5. SKYRIZI [Suspect]
     Active Substance: RISANKIZUMAB-RZAA
     Indication: Pustular psoriasis
     Dosage: LAST ADMINISTRATION DATE 2022?FOR STRENTH 150 MG
     Route: 058
     Dates: start: 20220105
  6. SKYRIZI [Suspect]
     Active Substance: RISANKIZUMAB-RZAA
     Dosage: LAST ADMINISTRATION DATE 2022
     Route: 058
     Dates: start: 20220622
  7. SKYRIZI [Suspect]
     Active Substance: RISANKIZUMAB-RZAA
     Dosage: LAST ADMINISTRATION DATE 2021?FORM STRENGTH 150 MG
     Route: 058
     Dates: start: 20210721
  8. SKYRIZI [Suspect]
     Active Substance: RISANKIZUMAB-RZAA
     Dosage: FORM STRENGTH: 150 MILLIGRAM?LAST ADMINISTRATION DATE 2021
     Route: 058
     Dates: start: 20210623
  9. SKYRIZI [Suspect]
     Active Substance: RISANKIZUMAB-RZAA
     Dosage: LAST ADMINISTRATION DATE 2022
     Route: 058
     Dates: start: 20220330
  10. HEPARINOID [Concomitant]
     Indication: Product used for unknown indication
     Route: 003
  11. BEPOTASTINE BESILATE [Concomitant]
     Active Substance: BEPOTASTINE BESILATE
     Indication: Pustular psoriasis
     Dosage: FORM STRENGTH 10 MG
     Route: 048
  12. CALCIPOTRIENE AND BETAMETHASONE DIPROPIONATE [Concomitant]
     Active Substance: BETAMETHASONE DIPROPIONATE\CALCIPOTRIENE
     Indication: Product used for unknown indication
     Route: 003

REACTIONS (4)
  - Facial paralysis [Recovering/Resolving]
  - Pustule [Unknown]
  - Skin wrinkling [Unknown]
  - Tuberculosis [Unknown]

NARRATIVE: CASE EVENT DATE: 20221020
